FAERS Safety Report 10188289 (Version 2)
Quarter: 2014Q2

REPORT INFORMATION
  Report Type: Spontaneous
  Country: BR (occurrence: BR)
  Receive Date: 20140522
  Receipt Date: 20140522
  Transmission Date: 20141212
  Serious: Yes (Other)
  Sender: FDA-Public Use
  Company Number: BR-SA-2014SA060067

PATIENT
  Age: 67 Year
  Sex: Female
  Weight: 87.3 kg

DRUGS (6)
  1. CLOPIDOGREL BISULFATE [Suspect]
     Indication: PRODUCT USED FOR UNKNOWN INDICATION
     Route: 048
     Dates: start: 20140505
  2. CLOPIDOGREL BISULFATE [Suspect]
     Indication: PRODUCT USED FOR UNKNOWN INDICATION
     Dosage: 2 TABLETS UNSPECIFIED FREQUENCY
     Route: 065
  3. CARVEDILOL [Concomitant]
     Route: 048
  4. PONDERA [Concomitant]
     Dosage: 1/8 TABLET DAILY
     Route: 048
  5. VALIUM [Concomitant]
     Dosage: 1/2 TABLET DAILY
     Route: 048
  6. PANTOZOL [Concomitant]
     Route: 048

REACTIONS (6)
  - Nausea [Not Recovered/Not Resolved]
  - Dyspepsia [Not Recovered/Not Resolved]
  - Flatulence [Not Recovered/Not Resolved]
  - Gastrooesophageal reflux disease [Not Recovered/Not Resolved]
  - Cerebrovascular accident [Unknown]
  - Eye disorder [Unknown]
